FAERS Safety Report 25305702 (Version 1)
Quarter: 2025Q2

REPORT INFORMATION
  Report Type: Spontaneous
  Country: US (occurrence: None)
  Receive Date: 20250513
  Receipt Date: 20250513
  Transmission Date: 20250716
  Serious: Yes (Hospitalization)
  Sender: FDA-CTU
  Company Number: None

PATIENT
  Age: 37 Year
  Sex: Male
  Weight: 136.1 kg

DRUGS (3)
  1. CYTARABINE [Suspect]
     Active Substance: CYTARABINE
  2. METHOTREXATE [Suspect]
     Active Substance: METHOTREXATE
     Dates: end: 20250416
  3. PONATINIB [Suspect]
     Active Substance: PONATINIB
     Dates: end: 20250426

REACTIONS (5)
  - Proctitis [None]
  - Alanine aminotransferase increased [None]
  - Therapy interrupted [None]
  - Haemoglobin decreased [None]
  - Platelet count decreased [None]

NARRATIVE: CASE EVENT DATE: 20250427
